FAERS Safety Report 15357890 (Version 2)
Quarter: 2019Q2

REPORT INFORMATION
  Report Type: Report from Study
  Country: DE (occurrence: DE)
  Receive Date: 20180906
  Receipt Date: 20190621
  Transmission Date: 20190711
  Serious: Yes (Other)
  Sender: FDA-Public Use
  Company Number: PHHY2017DE165233

PATIENT
  Sex: Male

DRUGS (3)
  1. OMNITROPE [Suspect]
     Active Substance: SOMATROPIN
     Dosage: 044 MG, (15 MG/1.5 ML SOLUTION FOR INJECTION)
     Route: 058
     Dates: start: 20121114
  2. LETROZOL [Concomitant]
     Active Substance: LETROZOLE
     Indication: SMALL FOR DATES BABY
     Dosage: UNK
     Route: 048
     Dates: start: 201804, end: 20190327
  3. OMNITROPE [Suspect]
     Active Substance: SOMATROPIN
     Indication: SMALL FOR DATES BABY
     Dosage: 0.044 MG/KG, QD, 15 MG/1.5 ML SOLUTION FOR INJECTION
     Route: 058
     Dates: start: 20120323

REACTIONS (5)
  - Basedow^s disease [Not Recovered/Not Resolved]
  - Incorrect dose administered [Recovered/Resolved]
  - Lymphadenitis [Recovered/Resolved]
  - Mood altered [Not Recovered/Not Resolved]
  - Psychomotor hyperactivity [Not Recovered/Not Resolved]

NARRATIVE: CASE EVENT DATE: 20160227
